FAERS Safety Report 6307259-4 (Version None)
Quarter: 2009Q3

REPORT INFORMATION
  Report Type: 
  Country: None (occurrence: None)
  Receive Date: 20090813
  Receipt Date: 20090713
  Transmission Date: 20100115
  Serious: No
  Sender: FDA-Public Use
  Company Number: US-BAYER-200918790NA

PATIENT
  Age: 68 Year
  Sex: Male

DRUGS (5)
  1. LEVITRA [Suspect]
     Indication: ERECTILE DYSFUNCTION
     Dates: start: 20070106
  2. PREVACID [Concomitant]
     Dates: start: 20070101
  3. ANTIHYPERTENSIVES [Concomitant]
  4. DIOVAN [Concomitant]
  5. LISINOPRIL [Concomitant]

REACTIONS (9)
  - CHEST PAIN [None]
  - DYSPNOEA [None]
  - GASTROOESOPHAGEAL REFLUX DISEASE [None]
  - HEADACHE [None]
  - LOCAL SWELLING [None]
  - NASAL CONGESTION [None]
  - NECK PAIN [None]
  - OEDEMA PERIPHERAL [None]
  - WEIGHT INCREASED [None]
